FAERS Safety Report 11124971 (Version 4)
Quarter: 2016Q3

REPORT INFORMATION
  Report Type: Spontaneous
  Country: GB (occurrence: GB)
  Receive Date: 20150520
  Receipt Date: 20160801
  Transmission Date: 20161109
  Serious: Yes (Other)
  Sender: FDA-Public Use
  Company Number: GB-ACTAVIS-2015-10149

PATIENT
  Age: 3 Week
  Sex: Male
  Weight: 3.5 kg

DRUGS (2)
  1. ACYCLOVIR (UNKNOWN) [Suspect]
     Active Substance: ACYCLOVIR
     Indication: RESPIRATORY TRACT INFECTION
     Dosage: 60 MG, TID
     Route: 042
     Dates: start: 20140611, end: 20140613
  2. AMOXICILLIN                        /00249603/ [Suspect]
     Active Substance: AMOXICILLIN SODIUM
     Indication: RESPIRATORY TRACT INFECTION
     Dosage: UNK
     Route: 042
     Dates: start: 20140611, end: 20140613

REACTIONS (2)
  - Injection site reaction [Not Recovered/Not Resolved]
  - Chemical injury [Not Recovered/Not Resolved]

NARRATIVE: CASE EVENT DATE: 20140612
